FAERS Safety Report 20166628 (Version 1)
Quarter: 2021Q4

REPORT INFORMATION
  Report Type: Spontaneous
  Country: IT (occurrence: IT)
  Receive Date: 20211209
  Receipt Date: 20211209
  Transmission Date: 20220303
  Serious: Yes (Other)
  Sender: FDA-Public Use
  Company Number: IT-JNJFOC-20211028876

PATIENT
  Age: 26 Year
  Sex: Male
  Weight: 150 kg

DRUGS (7)
  1. SERTRALINE [Suspect]
     Active Substance: SERTRALINE HYDROCHLORIDE
     Indication: Product used for unknown indication
     Dosage: 50 MILLIGRAM, (30 FILM COATED TABLETS)
     Route: 048
  2. CITALOPRAM [Suspect]
     Active Substance: CITALOPRAM HYDROBROMIDE
     Indication: Product used for unknown indication
     Dosage: 20 MILLIGRAM, (28 COATED TABLETS)
     Route: 048
  3. XANAX [Suspect]
     Active Substance: ALPRAZOLAM
     Indication: Product used for unknown indication
     Dosage: 50 MILLIGRAM, (20 TABLETS)
     Route: 048
  4. LYRICA [Suspect]
     Active Substance: PREGABALIN
     Indication: Product used for unknown indication
     Dosage: 25 MILLIGRAM, (14 TABLETS)
     Route: 048
  5. CHLORPROMAZINE [Suspect]
     Active Substance: CHLORPROMAZINE
     Indication: Product used for unknown indication
     Dosage: 25 MILLIGRAM, (25 TABLETS)
     Route: 048
  6. BISOPROLOL FUMARATE\PERINDOPRIL ARGININE [Suspect]
     Active Substance: BISOPROLOL FUMARATE\PERINDOPRIL ARGININE
     Indication: Product used for unknown indication
     Dosage: UNK, (5/10 MG 30 FILM COATED TABLETS)
     Route: 048
  7. INVEGA [Suspect]
     Active Substance: PALIPERIDONE
     Indication: Product used for unknown indication
     Dosage: 3 MILLIGRAM, (28 TABLETS)
     Route: 048

REACTIONS (3)
  - Hyperglycaemia [Unknown]
  - Intentional overdose [Unknown]
  - Intentional self-injury [Unknown]
